FAERS Safety Report 5739995-2 (Version None)
Quarter: 2008Q2

REPORT INFORMATION
  Report Type: 
  Country: None (occurrence: None)
  Receive Date: 20080516
  Receipt Date: 20080505
  Transmission Date: 20081010
  Serious: Yes (Hospitalization, Other)
  Sender: FDA-Public Use
  Company Number: HQWYE988815JUL03

PATIENT
  Sex: Female
  Weight: 66.28 kg

DRUGS (2)
  1. PREMPRO [Suspect]
     Indication: HORMONE REPLACEMENT THERAPY
     Dosage: DAILY, DOSE UNKNOWN
  2. PREMARIN [Suspect]

REACTIONS (1)
  - BREAST CANCER [None]
